FAERS Safety Report 6792877-X (Version None)
Quarter: 2010Q2

REPORT INFORMATION
  Report Type: 
  Country: None (occurrence: None)
  Receive Date: 20100624
  Receipt Date: 20081021
  Transmission Date: 20101027
  Serious: No
  Sender: FDA-Public Use
  Company Number: US-PFIZER INC-2008091269

PATIENT
  Sex: Female
  Weight: 70.76 kg

DRUGS (3)
  1. XALATAN [Suspect]
     Indication: INTRAOCULAR PRESSURE INCREASED
     Route: 047
     Dates: start: 20080101
  2. PREDNISONE [Suspect]
     Indication: ARTHRITIS
  3. ARTHROTEC [Concomitant]

REACTIONS (3)
  - DYSGEUSIA [None]
  - INTRAOCULAR PRESSURE INCREASED [None]
  - PAROSMIA [None]
